FAERS Safety Report 4615756-2 (Version None)
Quarter: 2005Q1

REPORT INFORMATION
  Report Type: 
  Country: None (occurrence: None)
  Receive Date: 20050317
  Receipt Date: 20050224
  Transmission Date: 20050727
  Serious: Yes (Life-Threatening)
  Sender: FDA-Public Use
  Company Number: 1456

PATIENT
  Age: 59 Year
  Sex: Female

DRUGS (1)
  1. AMNESTEEM [Suspect]
     Indication: ACNE
     Dosage: PO
     Route: 048
     Dates: start: 20030715, end: 20031201

REACTIONS (1)
  - RECTAL NEOPLASM [None]
